FAERS Safety Report 15448134 (Version 2)
Quarter: 2018Q4

REPORT INFORMATION
  Report Type: Report from Study
  Country: None (occurrence: CO)
  Receive Date: 20180928
  Receipt Date: 20181102
  Transmission Date: 20190204
  Serious: Yes (Hospitalization, Other)
  Sender: FDA-Public Use
  Company Number: CO-ABBVIE-18K-036-2503228-00

PATIENT
  Age: 56 Year
  Sex: Female
  Weight: 68 kg

DRUGS (1)
  1. HUMIRA [Suspect]
     Active Substance: ADALIMUMAB
     Indication: COLITIS ULCERATIVE
     Route: 058
     Dates: start: 20140829

REACTIONS (10)
  - Procedural headache [Unknown]
  - Asthenia [Not Recovered/Not Resolved]
  - Syncope [Unknown]
  - Fall [Unknown]
  - Dry mouth [Not Recovered/Not Resolved]
  - Dizziness [Not Recovered/Not Resolved]
  - Chest pain [Not Recovered/Not Resolved]
  - Glaucoma [Recovered/Resolved with Sequelae]
  - Vertigo [Not Recovered/Not Resolved]
  - Dry eye [Not Recovered/Not Resolved]

NARRATIVE: CASE EVENT DATE: 20180829
